FAERS Safety Report 11245781 (Version 6)
Quarter: 2016Q1

REPORT INFORMATION
  Report Type: Report from Study
  Country: SG (occurrence: SG)
  Receive Date: 20150707
  Receipt Date: 20160315
  Transmission Date: 20160525
  Serious: Yes (Death, Hospitalization)
  Sender: FDA-Public Use
  Company Number: SG-EXELIXIS-XL18415005534

PATIENT
  Age: 77 Year
  Sex: Male
  Weight: 51.8 kg

DRUGS (17)
  1. GABAPENTIN. [Concomitant]
     Active Substance: GABAPENTIN
  2. ALPRAZOLAM. [Concomitant]
     Active Substance: ALPRAZOLAM
  3. LACTULOSE. [Concomitant]
     Active Substance: LACTULOSE
  4. ACETYLCYSTEINE. [Concomitant]
     Active Substance: ACETYLCYSTEINE
  5. LOSARTAN. [Concomitant]
     Active Substance: LOSARTAN
  6. MEGESTROL ACETATE. [Concomitant]
     Active Substance: MEGESTROL ACETATE
  7. CINNARIZINE [Concomitant]
     Active Substance: CINNARIZINE
  8. XL184 [Suspect]
     Active Substance: CABOZANTINIB
     Indication: HEPATOCELLULAR CARCINOMA
     Dosage: 60 MG, QD
     Route: 048
     Dates: start: 20150608, end: 20150624
  9. OMEPRAZOLE. [Concomitant]
     Active Substance: OMEPRAZOLE
  10. TRAMADOL. [Concomitant]
     Active Substance: TRAMADOL
  11. ETORICOXIB [Concomitant]
     Active Substance: ETORICOXIB
  12. ATENOLOL. [Concomitant]
     Active Substance: ATENOLOL
  13. HYDROCORTISONE. [Concomitant]
     Active Substance: HYDROCORTISONE
  14. UREA. [Concomitant]
     Active Substance: UREA
  15. SENNOSIDE [Concomitant]
     Active Substance: SENNOSIDES
  16. MORPHINE SULFATE. [Concomitant]
     Active Substance: MORPHINE SULFATE
  17. ROSUVASTATIN [Concomitant]
     Active Substance: ROSUVASTATIN

REACTIONS (4)
  - Hyponatraemia [Recovered/Resolved]
  - Fatigue [Not Recovered/Not Resolved]
  - Hepatocellular carcinoma [Fatal]
  - Fall [Recovered/Resolved]

NARRATIVE: CASE EVENT DATE: 20150702
